FAERS Safety Report 5989589-9 (Version None)
Quarter: 2008Q4

REPORT INFORMATION
  Report Type: 
  Country: None (occurrence: None)
  Receive Date: 20081208
  Receipt Date: 20081201
  Transmission Date: 20090506
  Serious: Yes (Death)
  Sender: FDA-Public Use
  Company Number: 2007SP012367

PATIENT
  Age: 36 Year
  Sex: Female
  Weight: 46 kg

DRUGS (7)
  1. TEMODAL [Suspect]
     Indication: GLIOMA
     Dosage: 150 MG/M2;QD;PO : 150 MG/M2;QD;PO
     Route: 048
     Dates: start: 20061107, end: 20061111
  2. TEMODAL [Suspect]
     Indication: GLIOMA
     Dosage: 150 MG/M2;QD;PO : 150 MG/M2;QD;PO
     Route: 048
     Dates: start: 20061205, end: 20061209
  3. MUCOSTA [Concomitant]
  4. MAGNESIUM OXIDE [Concomitant]
  5. DEPAKENE [Concomitant]
  6. SP TROCHE [Concomitant]
  7. PURSENNID [Concomitant]

REACTIONS (6)
  - ASPIRATION [None]
  - DISEASE PROGRESSION [None]
  - DYSPHAGIA [None]
  - EATING DISORDER [None]
  - MALNUTRITION [None]
  - PARALYSIS [None]
